FAERS Safety Report 6138064-X (Version None)
Quarter: 2009Q1

REPORT INFORMATION
  Report Type: 
  Country: None (occurrence: None)
  Receive Date: 20090331
  Receipt Date: 20090326
  Transmission Date: 20090719
  Serious: Yes (Other)
  Sender: FDA-Public Use
  Company Number: JP-BAYER-200910644BYL

PATIENT
  Age: 74 Year
  Sex: Male
  Weight: 45 kg

DRUGS (5)
  1. NEXAVAR [Suspect]
     Indication: RENAL CELL CARCINOMA STAGE IV
     Dosage: UNIT DOSE: 200 MG
     Route: 048
     Dates: start: 20080813, end: 20090121
  2. NEXAVAR [Suspect]
     Dosage: UNIT DOSE: 200 MG
     Route: 048
     Dates: start: 20090122
  3. SIGMART [Concomitant]
     Route: 048
  4. TAKEPRON [Concomitant]
     Route: 048
     Dates: end: 20081001
  5. CYANOCOBALAMIN [Concomitant]
     Route: 048

REACTIONS (8)
  - ABDOMINAL DISCOMFORT [None]
  - ALOPECIA [None]
  - ASTHENIA [None]
  - DYSPHONIA [None]
  - ERYTHEMA [None]
  - HYPERTENSION [None]
  - INTERSTITIAL LUNG DISEASE [None]
  - STOMATITIS [None]
